FAERS Safety Report 5010101-5 (Version None)
Quarter: 2006Q2

REPORT INFORMATION
  Report Type: 
  Country: None (occurrence: None)
  Receive Date: 20060523
  Receipt Date: 20060520
  Transmission Date: 20061013
  Serious: Yes (Death)
  Sender: FDA-Public Use
  Company Number: 222593

PATIENT
  Age: 47 Year
  Sex: Male
  Weight: 89 kg

DRUGS (9)
  1. AVASTIN [Suspect]
     Indication: PANCREATIC CARCINOMA METASTATIC
     Dosage: 445 MG, Q2W, INTRAVENOUS
     Route: 042
     Dates: start: 20060117
  2. AVASTIN [Suspect]
  3. ERLOTINIB (ERLOTINIB) [Suspect]
     Indication: PANCREATIC CARCINOMA METASTATIC
     Dosage: 50 MG, QD, ORAL
     Route: 048
     Dates: start: 20060117
  4. GEMCITABINE [Suspect]
     Indication: PANCREATIC CARCINOMA METASTATIC
     Dosage: 2000 MG, 1/WEEK, INTRAVENOUS
     Route: 042
     Dates: start: 20060117
  5. FRAGMIN [Concomitant]
  6. TRANSTEC (BUPRENORPHINE HYDROCHLORIDE) [Concomitant]
  7. GLUCOBAY [Concomitant]
  8. GLUCOPHAGE [Concomitant]
  9. FUROSEMIDE [Concomitant]

REACTIONS (1)
  - FALL [None]
